FAERS Safety Report 4474475-6 (Version None)
Quarter: 2004Q4

REPORT INFORMATION
  Report Type: 
  Country: None (occurrence: None)
  Receive Date: 20041014
  Receipt Date: 20040809
  Transmission Date: 20050328
  Serious: Yes (Disabling)
  Sender: FDA-Public Use
  Company Number: JP-GLAXOSMITHKLINE-B0342523A

PATIENT
  Age: 34 Year
  Sex: Male
  Weight: 62 kg

DRUGS (3)
  1. PAXIL [Suspect]
     Indication: DEPRESSION
     Route: 048
     Dates: start: 20010427
  2. LEXOTAN [Suspect]
     Indication: DEPRESSION
     Route: 048
     Dates: start: 20010312, end: 20020804
  3. ANAFRANIL [Suspect]
     Indication: DEPRESSION
     Dosage: 10MG SEE DOSAGE TEXT
     Route: 048
     Dates: start: 20010312, end: 20021110

REACTIONS (2)
  - ROAD TRAFFIC ACCIDENT [None]
  - SOMNOLENCE [None]
